FAERS Safety Report 14385394 (Version 3)
Quarter: 2018Q3

REPORT INFORMATION
  Report Type: Spontaneous
  Country: US (occurrence: US)
  Receive Date: 20180115
  Receipt Date: 20180723
  Transmission Date: 20181010
  Serious: Yes (Other)
  Sender: FDA-Public Use
  Company Number: US-SA-2016SA232551

PATIENT
  Age: 42 Year
  Sex: Female
  Weight: 95 kg

DRUGS (7)
  1. SYNTHROID [Concomitant]
     Active Substance: LEVOTHYROXINE SODIUM
     Dosage: UNK UNK,UNK
     Route: 065
  2. ADRIAMYCIN [DOXORUBICIN] [Concomitant]
     Indication: BREAST CANCER
     Dosage: UNK UNK,QCY
     Route: 065
  3. TAXOTERE [Suspect]
     Active Substance: DOCETAXEL
     Indication: BREAST CANCER FEMALE
     Dosage: 177 MG,Q3W
     Route: 042
     Dates: start: 20070824, end: 20070824
  4. LOTEPREDNOL ETABONATE [Concomitant]
     Active Substance: LOTEPREDNOL ETABONATE
     Dosage: UNK UNK,UNK
     Route: 065
     Dates: start: 2002
  5. TAXOTERE [Suspect]
     Active Substance: DOCETAXEL
     Dosage: 177 MG,Q3W
     Route: 042
     Dates: start: 20071005, end: 20071005
  6. DOXYCYCLINE HYDROCHLORIDE [Concomitant]
     Active Substance: DOXYCYCLINE HYDROCHLORIDE
     Indication: BREAST CANCER
     Dosage: UNK UNK,QCY
     Route: 065
  7. NEOSAR [Concomitant]
     Active Substance: CYCLOPHOSPHAMIDE
     Indication: BREAST CANCER
     Dosage: UNK UNK,QCY
     Route: 065

REACTIONS (5)
  - Impaired quality of life [Unknown]
  - Emotional distress [Unknown]
  - Alopecia [Recovering/Resolving]
  - Anxiety [Unknown]
  - Psychological trauma [Unknown]

NARRATIVE: CASE EVENT DATE: 200812
